FAERS Safety Report 22267126 (Version 1)
Quarter: 2023Q2

REPORT INFORMATION
  Report Type: Spontaneous
  Country: US (occurrence: None)
  Receive Date: 20230427
  Receipt Date: 20230427
  Transmission Date: 20230721
  Serious: Yes (Death)
  Sender: FDA-Public Use
  Company Number: None

PATIENT
  Age: 72 Year
  Sex: Female
  Weight: 49.9 kg

DRUGS (1)
  1. TEPOTINIB [Suspect]
     Active Substance: TEPOTINIB
     Indication: Non-small cell lung cancer
     Dosage: FREQUENCY : DAILY;?
     Route: 048
     Dates: start: 20220106

REACTIONS (6)
  - Acute lung injury [None]
  - Toxicity to various agents [None]
  - Pulmonary alveolar haemorrhage [None]
  - Atypical pneumonia [None]
  - Pulmonary oedema [None]
  - Hypoxia [None]

NARRATIVE: CASE EVENT DATE: 20230424
